FAERS Safety Report 23305180 (Version 3)
Quarter: 2024Q3

REPORT INFORMATION
  Report Type: Spontaneous
  Country: JP (occurrence: JP)
  Receive Date: 20231218
  Receipt Date: 20240705
  Transmission Date: 20241017
  Serious: Yes (Hospitalization)
  Sender: JOHNSON AND JOHNSON
  Company Number: JP-JNJFOC-20231241532

PATIENT
  Age: 43 Year
  Sex: Male

DRUGS (3)
  1. TREMFYA [Suspect]
     Active Substance: GUSELKUMAB
     Indication: Psoriasis
     Route: 058
     Dates: start: 20200803
  2. TREMFYA [Suspect]
     Active Substance: GUSELKUMAB
  3. CEFOZOPRAN HYDROCHLORIDE [Suspect]
     Active Substance: CEFOZOPRAN HYDROCHLORIDE
     Indication: Septic shock
     Dosage: DOSE UNKNOWN
     Route: 065

REACTIONS (2)
  - Staphylococcal scalded skin syndrome [Recovered/Resolved]
  - Septic shock [Unknown]

NARRATIVE: CASE EVENT DATE: 20230101
